FAERS Safety Report 22287011 (Version 4)
Quarter: 2024Q1

REPORT INFORMATION
  Report Type: Spontaneous
  Country: US (occurrence: US)
  Receive Date: 20230505
  Receipt Date: 20240311
  Transmission Date: 20240410
  Serious: Yes (Other)
  Sender: FDA-Public Use
  Company Number: US-SA-SAC20230502001559

PATIENT
  Age: 69 Year
  Sex: Male
  Weight: 117.9 kg

DRUGS (25)
  1. DUPIXENT [Suspect]
     Active Substance: DUPILUMAB
     Indication: Dermatitis atopic
     Dosage: 300 MG, QOW
     Route: 058
     Dates: start: 202302
  2. FLUARIX NOS [Concomitant]
     Active Substance: INFLUENZA VIRUS VACCINE
     Dosage: UNK
  3. HYDROCORTISONE ACETATE [Concomitant]
     Active Substance: HYDROCORTISONE ACETATE
     Dosage: UNK
  4. ZANAFLEX [Concomitant]
     Active Substance: TIZANIDINE HYDROCHLORIDE
     Dosage: UNK
  5. LIALDA [Concomitant]
     Active Substance: MESALAMINE
     Dosage: UNK
  6. CYMBALTA [Concomitant]
     Active Substance: DULOXETINE HYDROCHLORIDE
     Dosage: UNK
  7. ZETIA [Concomitant]
     Active Substance: EZETIMIBE
     Dosage: UNK
  8. HYDROCHLOROTHIAZIDE [Concomitant]
     Active Substance: HYDROCHLOROTHIAZIDE
  9. PROTONIX [Concomitant]
     Active Substance: PANTOPRAZOLE SODIUM
  10. CARVEDILOL [Concomitant]
     Active Substance: CARVEDILOL
     Dosage: UNK
  11. PROSCAR [Concomitant]
     Active Substance: FINASTERIDE
  12. NORVASC [Concomitant]
     Active Substance: AMLODIPINE BESYLATE
  13. VASOTEC [Concomitant]
     Active Substance: ENALAPRIL MALEATE
  14. MELATONIN [Concomitant]
     Active Substance: MELATONIN
  15. ECOTRIN [Concomitant]
     Active Substance: ASPIRIN
  16. TYLENOL [Concomitant]
     Active Substance: ACETAMINOPHEN
  17. IRON [Concomitant]
     Active Substance: IRON
  18. OMEGA-3 FATTY ACIDS [Concomitant]
     Active Substance: OMEGA-3 FATTY ACIDS
  19. COQ10 RX [Concomitant]
  20. VITAMINS [Concomitant]
     Active Substance: VITAMINS
  21. MODERNA COVID-19 VACCINE [Concomitant]
     Active Substance: ELASOMERAN
  22. ENALAPRILAT [Concomitant]
     Active Substance: ENALAPRILAT
  23. OMEPRAZOLE [Concomitant]
     Active Substance: OMEPRAZOLE
  24. CANNABIDIOL [Concomitant]
     Active Substance: CANNABIDIOL
     Route: 061
  25. METAMUCIL [Concomitant]
     Active Substance: PLANTAGO SEED
     Dosage: METAMUCIL 3.4G/11G POWDER

REACTIONS (10)
  - Neuropathy peripheral [Not Recovered/Not Resolved]
  - Diarrhoea [Recovering/Resolving]
  - Flatulence [Recovering/Resolving]
  - Feeling jittery [Not Recovered/Not Resolved]
  - Gastrointestinal disorder [Not Recovered/Not Resolved]
  - Gastrointestinal pain [Not Recovered/Not Resolved]
  - Condition aggravated [Not Recovered/Not Resolved]
  - Onychomycosis [Unknown]
  - Micturition urgency [Unknown]
  - Therapeutic response decreased [Unknown]

NARRATIVE: CASE EVENT DATE: 20230201
